FAERS Safety Report 24280784 (Version 1)
Quarter: 2024Q3

REPORT INFORMATION
  Report Type: Spontaneous
  Country: US (occurrence: None)
  Receive Date: 20240904
  Receipt Date: 20240904
  Transmission Date: 20241016
  Serious: No
  Sender: ASTRAZENECA
  Company Number: 2024A199357

PATIENT
  Age: 25643 Day
  Sex: Female

DRUGS (1)
  1. FASLODEX [Suspect]
     Active Substance: FULVESTRANT

REACTIONS (6)
  - Injection site scar [Unknown]
  - Haemorrhagic diathesis [Unknown]
  - Skin disorder [Unknown]
  - Muscle disorder [Unknown]
  - Dysstasia [Unknown]
  - Mobility decreased [Unknown]

NARRATIVE: CASE EVENT DATE: 20240731
